FAERS Safety Report 7013018-X (Version None)
Quarter: 2010Q3

REPORT INFORMATION
  Report Type: 
  Country: None (occurrence: None)
  Receive Date: 20100924
  Receipt Date: 20100913
  Transmission Date: 20110219
  Serious: Yes (Other)
  Sender: FDA-Public Use
  Company Number: US-PFIZER INC-2010116331

PATIENT
  Sex: Female
  Weight: 95.238 kg

DRUGS (11)
  1. LYRICA [Suspect]
     Indication: NEURALGIA
     Dosage: 50 MG, 1X/DAY
     Route: 048
     Dates: start: 20100801
  2. LYRICA [Suspect]
     Dosage: 50 MG, 2X/DAY
     Route: 048
  3. PREDNISONE [Suspect]
     Indication: POLYMYALGIA RHEUMATICA
     Dosage: 10 MG IN MORNING, 5 MG IN EVENING
     Route: 048
     Dates: start: 20070101
  4. LISINOPRIL AND HYDROCHLOROTHIAZIDE [Suspect]
     Dosage: UNK
     Route: 048
  5. PAROXETINE MESILATE [Suspect]
     Indication: FATIGUE
     Dosage: UNK
     Route: 048
  6. PAROXETINE MESILATE [Suspect]
     Indication: ASTHENIA
  7. LASIX [Suspect]
     Indication: FLUID RETENTION
     Dosage: 20 MG, 1X/DAY
     Route: 048
  8. FOSAMAX [Suspect]
     Indication: CALCIUM DEFICIENCY
     Dosage: 70 MG, WEEKLY
     Route: 048
  9. SYNTHROID [Suspect]
     Indication: HYPOTHYROIDISM
     Dosage: 137 MCG TWO TABLETS FOR 2 DAYS AND HALF TABLET FOR NEXT 5 DAYS IN A WEEK
     Route: 048
  10. REQUIP [Suspect]
     Dosage: 1 MG, 1X/DAY
     Route: 048
  11. LOVASTATIN [Suspect]
     Dosage: 40 MG, 1X/DAY
     Route: 048

REACTIONS (7)
  - ACTIVITIES OF DAILY LIVING IMPAIRED [None]
  - DIZZINESS [None]
  - DYSKINESIA [None]
  - FEAR [None]
  - SYSTEMIC LUPUS ERYTHEMATOSUS [None]
  - THINKING ABNORMAL [None]
  - TREMOR [None]
